FAERS Safety Report 10608299 (Version 4)
Quarter: 2015Q1

REPORT INFORMATION
  Report Type: Spontaneous
  Country: US (occurrence: US)
  Receive Date: 20141125
  Receipt Date: 20150219
  Transmission Date: 20150720
  Serious: Yes (Hospitalization, Other)
  Sender: FDA-Public Use
  Company Number: US-TEVA-523836USA

PATIENT
  Age: 41 Year
  Sex: Female
  Weight: 55.39 kg

DRUGS (8)
  1. LEVOTHYROXINE [Concomitant]
     Active Substance: LEVOTHYROXINE
     Indication: HYPOTHYROIDISM
     Dosage: 75 MICROGRAM DAILY;
     Route: 048
  2. VENTOLIN [Concomitant]
     Active Substance: ALBUTEROL SULFATE
  3. NUVIGIL [Suspect]
     Active Substance: ARMODAFINIL
     Dosage: 250 MILLIGRAM DAILY;
  4. FLONASE [Concomitant]
     Active Substance: FLUTICASONE PROPIONATE
  5. NUVIGIL [Suspect]
     Active Substance: ARMODAFINIL
     Dosage: 300 MILLIGRAM DAILY;
  6. AMPHETAMINE W/DEXTROAMPHETAMINE [Suspect]
     Active Substance: AMPHETAMINE SULFATE\DEXTROAMPHETAMINE
     Indication: HYPERSOMNIA
     Route: 065
  7. NUVIGIL [Suspect]
     Active Substance: ARMODAFINIL
     Indication: HYPERSOMNIA
     Dosage: 150 MILLIGRAM DAILY;
     Route: 065
  8. CETERIZINE [Concomitant]
     Indication: HYPERSENSITIVITY

REACTIONS (13)
  - Dizziness [Not Recovered/Not Resolved]
  - Somnolence [Recovered/Resolved]
  - Drug effect decreased [Unknown]
  - Mood swings [Not Recovered/Not Resolved]
  - Hypotension [Recovered/Resolved]
  - Sinusitis [Not Recovered/Not Resolved]
  - Loss of consciousness [Recovered/Resolved]
  - Sinus headache [Not Recovered/Not Resolved]
  - Sinusitis [Recovered/Resolved]
  - Depression [Not Recovered/Not Resolved]
  - Weight fluctuation [Not Recovered/Not Resolved]
  - Blood prolactin increased [Not Recovered/Not Resolved]
  - Rhinitis [Not Recovered/Not Resolved]

NARRATIVE: CASE EVENT DATE: 20140101
